FAERS Safety Report 13622176 (Version 1)
Quarter: 2017Q2

REPORT INFORMATION
  Report Type: Spontaneous
  Country: US (occurrence: US)
  Receive Date: 20170607
  Receipt Date: 20170607
  Transmission Date: 20170830
  Serious: Yes (Hospitalization)
  Sender: FDA-Public Use
  Company Number: US-ROCHE-748725

PATIENT
  Age: 58 Year
  Sex: Female
  Weight: 81.6 kg

DRUGS (2)
  1. TRISENOX [Suspect]
     Active Substance: ARSENIC TRIOXIDE
     Indication: ACUTE PROMYELOCYTIC LEUKAEMIA
     Dosage: FORM:SOLUTION FOR INJECTION. FREQUENCY: X5/WEEKX4WEEKS, EVERY EIGHT WEEKS
     Route: 041
     Dates: start: 20100618, end: 20101115
  2. TRETINOIN. [Suspect]
     Active Substance: TRETINOIN
     Indication: ACUTE PROMYELOCYTIC LEUKAEMIA
     Dosage: 2 DOSES TWICE DAILY FOR 14 DAYS
     Route: 048

REACTIONS (3)
  - Drug eruption [Recovered/Resolved]
  - Malaise [Recovered/Resolved]
  - Pyrexia [Recovered/Resolved]

NARRATIVE: CASE EVENT DATE: 20101115
